FAERS Safety Report 12766889 (Version 1)
Quarter: 2016Q3

REPORT INFORMATION
  Report Type: Spontaneous
  Country: FI (occurrence: FI)
  Receive Date: 20160921
  Receipt Date: 20160921
  Transmission Date: 20161109
  Serious: Yes (Other)
  Sender: FDA-Public Use
  Company Number: FI-ASTRAZENECA-2016SE97831

PATIENT
  Sex: Female

DRUGS (8)
  1. PRIMPERAN [Concomitant]
     Active Substance: METOCLOPRAMIDE HYDROCHLORIDE
  2. SOMAC [Concomitant]
     Active Substance: PANTOPRAZOLE SODIUM
  3. FASLODEX [Suspect]
     Active Substance: FULVESTRANT
     Indication: BREAST CANCER
     Dosage: 250 MG/5 ML
     Route: 030
  4. PARACETAMOL [Concomitant]
     Active Substance: ACETAMINOPHEN
  5. KALCIUM-D [Concomitant]
  6. CORTISONE [Concomitant]
     Active Substance: CORTISONE\HYDROCORTISONE
  7. A SLEEPING PILL [Concomitant]
  8. LOPES [Concomitant]

REACTIONS (1)
  - Metastasis [Unknown]
